FAERS Safety Report 11196438 (Version 1)
Quarter: 2015Q2

REPORT INFORMATION
  Report Type: Spontaneous
  Country: FR (occurrence: FR)
  Receive Date: 20150617
  Receipt Date: 20150617
  Transmission Date: 20150821
  Serious: Yes (Life-Threatening, Hospitalization)
  Sender: FDA-Public Use
  Company Number: FR-PFIZER INC-2015195993

PATIENT
  Age: 72 Year
  Sex: Female

DRUGS (6)
  1. EXACYL [Concomitant]
     Active Substance: TRANEXAMIC ACID
     Dosage: 3 G, DAILY
  2. OXYCONTIN [Concomitant]
     Active Substance: OXYCODONE HYDROCHLORIDE
  3. SUTENT [Suspect]
     Active Substance: SUNITINIB MALATE
     Indication: RENAL CANCER METASTATIC
     Dosage: 37.5 MG, DAILY
     Route: 048
     Dates: start: 201309
  4. SUTENT [Suspect]
     Active Substance: SUNITINIB MALATE
     Dosage: 50 MG, DAILY 2 WEEKS ON 1 WEEK OFF
     Route: 048
     Dates: start: 201405, end: 20141025
  5. INNOHEP [Concomitant]
     Active Substance: TINZAPARIN SODIUM
  6. AERIUS [Concomitant]
     Active Substance: DESLORATADINE

REACTIONS (1)
  - Angioedema [Recovered/Resolved]

NARRATIVE: CASE EVENT DATE: 20141026
